FAERS Safety Report 20421418 (Version 3)
Quarter: 2022Q1

REPORT INFORMATION
  Report Type: Spontaneous
  Country: US (occurrence: US)
  Receive Date: 20220203
  Receipt Date: 20220328
  Transmission Date: 20220424
  Serious: Yes (Other)
  Sender: FDA-Public Use
  Company Number: US-PFIZER INC-202101548629

PATIENT
  Age: 54 Year
  Sex: Female

DRUGS (2)
  1. XELJANZ XR [Suspect]
     Active Substance: TOFACITINIB CITRATE
     Indication: Psoriatic arthropathy
     Dosage: 11 MG, 1X/DAY
     Route: 048
     Dates: start: 202111
  2. XELJANZ XR [Suspect]
     Active Substance: TOFACITINIB CITRATE
     Dosage: 11 MG, DAILY
     Route: 048
     Dates: start: 20211101

REACTIONS (8)
  - Psoriatic arthropathy [Recovering/Resolving]
  - Arthralgia [Unknown]
  - Musculoskeletal stiffness [Unknown]
  - Memory impairment [Unknown]
  - Peripheral swelling [Recovering/Resolving]
  - Urinary tract infection [Recovering/Resolving]
  - Pain [Unknown]
  - Product dose omission issue [Unknown]
